FAERS Safety Report 4447344-5 (Version None)
Quarter: 2004Q3

REPORT INFORMATION
  Report Type: 
  Country: None (occurrence: None)
  Receive Date: 20040813
  Receipt Date: 20040709
  Transmission Date: 20050211
  Serious: No
  Sender: FDA-Public Use
  Company Number: S04-USA-03915-01

PATIENT
  Age: 71 Year
  Sex: Male

DRUGS (4)
  1. NAMENDA [Suspect]
     Indication: AMNESIA
     Dosage: 5 MG QD PO
     Route: 048
     Dates: start: 20040702, end: 20040708
  2. NAMENDA [Suspect]
     Indication: AMNESIA
     Dosage: 10 MG QD PO
     Route: 048
     Dates: start: 20040709
  3. DITROPAN [Concomitant]
  4. NORVASC [Concomitant]

REACTIONS (2)
  - RASH [None]
  - SUNBURN [None]
